FAERS Safety Report 5872067-5 (Version None)
Quarter: 2008Q3

REPORT INFORMATION
  Report Type: 
  Country: None (occurrence: None)
  Receive Date: 20080905
  Receipt Date: 20080826
  Transmission Date: 20090109
  Serious: Yes (Hospitalization)
  Sender: FDA-Public Use
  Company Number: A0621367C

PATIENT
  Age: 66 Year
  Sex: Female
  Weight: 82 kg

DRUGS (2)
  1. LAPATINIB [Suspect]
     Dosage: 1500MG PER DAY
     Route: 048
     Dates: start: 20060726
  2. LETROZOLE [Suspect]
     Dosage: 2.5MG PER DAY
     Route: 048
     Dates: start: 20060726

REACTIONS (8)
  - ABDOMINAL PAIN [None]
  - ARTHRALGIA [None]
  - ARTHRITIS [None]
  - BACK PAIN [None]
  - GASTROENTERITIS [None]
  - OEDEMA PERIPHERAL [None]
  - PAIN IN EXTREMITY [None]
  - VOMITING [None]
